FAERS Safety Report 11641466 (Version 4)
Quarter: 2016Q1

REPORT INFORMATION
  Report Type: Spontaneous
  Country: US (occurrence: US)
  Receive Date: 20151019
  Receipt Date: 20160127
  Transmission Date: 20160525
  Serious: Yes (Other)
  Sender: FDA-Public Use
  Company Number: US-BAYER-2015-441324

PATIENT
  Age: 62 Year
  Sex: Female

DRUGS (3)
  1. NEXAVAR [Suspect]
     Active Substance: SORAFENIB
     Indication: ERDHEIM-CHESTER DISEASE
     Dosage: 200 MG ALTERNATING WITH 400MG (EVERY OTHER DAY)
     Route: 048
  2. NEXAVAR [Suspect]
     Active Substance: SORAFENIB
     Indication: ERDHEIM-CHESTER DISEASE
     Dosage: 200 MG ALTERNATING WITH 600 MG (EVERY OTHER DAY)
     Route: 048
  3. NEXAVAR [Suspect]
     Active Substance: SORAFENIB
     Indication: ERDHEIM-CHESTER DISEASE
     Dosage: 400MG IN AM AND 200MG IN PM
     Route: 048
     Dates: start: 20150113

REACTIONS (10)
  - Cough [None]
  - Off label use [None]
  - Respiratory tract congestion [None]
  - Macular oedema [None]
  - Gastrooesophageal reflux disease [None]
  - Acne [None]
  - Contusion [None]
  - Dizziness [None]
  - Blister [None]
  - Rash [None]
